FAERS Safety Report 16458825 (Version 1)
Quarter: 2019Q2

REPORT INFORMATION
  Report Type: Spontaneous
  Country: US (occurrence: US)
  Receive Date: 20190620
  Receipt Date: 20190620
  Transmission Date: 20190711
  Serious: No
  Sender: FDA-Public Use
  Company Number: US-THERAPEUTICSMD-2019TMD00860

PATIENT
  Sex: Female
  Weight: 52.15 kg

DRUGS (4)
  1. THYROID MEDICATION [Suspect]
     Active Substance: UNSPECIFIED INGREDIENT
     Indication: HYPOTHYROIDISM
     Dosage: UNK
  2. IMVEXXY [Suspect]
     Active Substance: ESTRADIOL
     Dosage: 10 ?G, 2X/WEEK BEFORE BED
     Route: 067
     Dates: start: 201902, end: 2019
  3. VITAMINS [Concomitant]
     Active Substance: VITAMINS
  4. IMVEXXY [Suspect]
     Active Substance: ESTRADIOL
     Indication: DYSPAREUNIA
     Dosage: 10 ?G, 1X/DAY BEFORE BED
     Route: 067
     Dates: start: 201902, end: 201902

REACTIONS (8)
  - Headache [Recovering/Resolving]
  - Drug interaction [Recovered/Resolved]
  - Weight increased [Recovering/Resolving]
  - Blood thyroid stimulating hormone increased [Unknown]
  - Fluid retention [Recovering/Resolving]
  - Urine output decreased [Recovering/Resolving]
  - Malabsorption [Recovered/Resolved]
  - Abdominal distension [Recovering/Resolving]

NARRATIVE: CASE EVENT DATE: 2019
